FAERS Safety Report 20821791 (Version 1)
Quarter: 2022Q2

REPORT INFORMATION
  Report Type: Spontaneous
  Country: US (occurrence: US)
  Receive Date: 20220512
  Receipt Date: 20220512
  Transmission Date: 20220721
  Serious: No
  Sender: FDA-Public Use
  Company Number: US-PFIZER INC-202200281555

PATIENT
  Sex: Female

DRUGS (3)
  1. RETACRIT [Suspect]
     Active Substance: EPOETIN ALFA-EPBX
     Dosage: UNK
  2. RETACRIT [Suspect]
     Active Substance: EPOETIN ALFA-EPBX
     Dosage: UNK
  3. RETACRIT [Suspect]
     Active Substance: EPOETIN ALFA-EPBX
     Dosage: UNK

REACTIONS (1)
  - Anaemia [Unknown]
